FAERS Safety Report 5693261-2 (Version None)
Quarter: 2008Q2

REPORT INFORMATION
  Report Type: 
  Country: None (occurrence: None)
  Receive Date: 20080403
  Receipt Date: 20080323
  Transmission Date: 20081010
  Serious: Yes (Other)
  Sender: FDA-Public Use
  Company Number: PHEH2008US03070

PATIENT

DRUGS (1)
  1. FEMARA [Suspect]
     Dates: start: 20030101

REACTIONS (3)
  - ALOPECIA [None]
  - MUSCULOSKELETAL STIFFNESS [None]
  - RESORPTION BONE INCREASED [None]
